FAERS Safety Report 6639932-2 (Version None)
Quarter: 2010Q1

REPORT INFORMATION
  Report Type: 
  Country: None (occurrence: None)
  Receive Date: 20100302
  Receipt Date: 20091118
  Transmission Date: 20100710
  Serious: No
  Sender: FDA-Public Use
  Company Number: 2009227184

PATIENT
  Age: 75 Year
  Sex: Female
  Weight: 81.2 kg

DRUGS (11)
  1. TOVIAZ [Suspect]
     Indication: HYPERTONIC BLADDER
     Dosage: 4 MG, 1X/DAY, ORAL
     Route: 048
     Dates: start: 20090605, end: 20090607
  2. ZETIA [Concomitant]
  3. ZOLOFT [Concomitant]
  4. PLAVIX [Concomitant]
  5. METOPROLOL (METOPROLOL) [Concomitant]
  6. CELEBREX [Concomitant]
  7. LIPITOR [Concomitant]
  8. ASPIRIN [Concomitant]
  9. CALCIUM (CALCIUM) [Concomitant]
  10. ACTONEL [Concomitant]
  11. ACIPHEX [Concomitant]

REACTIONS (3)
  - NOCTURIA [None]
  - OEDEMA PERIPHERAL [None]
  - TRIGGER FINGER [None]
